FAERS Safety Report 7072425-X (Version None)
Quarter: 2010Q4

REPORT INFORMATION
  Report Type: 
  Country: None (occurrence: None)
  Receive Date: 20101029
  Receipt Date: 20100125
  Transmission Date: 20110411
  Serious: No
  Sender: FDA-Public Use
  Company Number: A0841248A

PATIENT
  Age: 89 Year
  Sex: Female

DRUGS (9)
  1. ADVAIR DISKUS 100/50 [Suspect]
     Indication: ASTHMA
     Dosage: 1PUFF TWICE PER DAY
     Route: 055
  2. WARFARIN SODIUM [Concomitant]
  3. ENALAPRIL MALEATE [Concomitant]
  4. NEBULIZATION THERAPY [Concomitant]
  5. LIPITOR [Concomitant]
  6. AVAPRO [Concomitant]
  7. GLIMEPIRIDE [Concomitant]
  8. TRIAMTERENE AND HYDROCHLOROTHIAZIDE [Concomitant]
  9. DILTIAZEM [Concomitant]

REACTIONS (1)
  - STOMATITIS [None]
